FAERS Safety Report 19471865 (Version 1)
Quarter: 2021Q2

REPORT INFORMATION
  Report Type: Spontaneous
  Country: US (occurrence: US)
  Receive Date: 20210629
  Receipt Date: 20210629
  Transmission Date: 20210717
  Serious: Yes (Hospitalization)
  Sender: FDA-Public Use
  Company Number: None

PATIENT
  Age: 62 Year
  Sex: Female
  Weight: 127 kg

DRUGS (3)
  1. CYTARABINE. [Suspect]
     Active Substance: CYTARABINE
     Dates: end: 20210226
  2. RITUXIMAB (MOAB C2B8 ANTI CD20, CHIMERIC) [Suspect]
     Active Substance: RITUXIMAB
     Dates: end: 20210225
  3. BENDAMUSTINE [Suspect]
     Active Substance: BENDAMUSTINE
     Dates: end: 20210129

REACTIONS (7)
  - Pancytopenia [None]
  - Retinal haemorrhage [None]
  - Traumatic haematoma [None]
  - Transfusion [None]
  - Platelet transfusion [None]
  - Headache [None]
  - Injection site haemorrhage [None]

NARRATIVE: CASE EVENT DATE: 20210309
